FAERS Safety Report 21661571 (Version 2)
Quarter: 2022Q4

REPORT INFORMATION
  Report Type: Other
  Country: CH (occurrence: CH)
  Receive Date: 20221130
  Receipt Date: 20221202
  Transmission Date: 20230113
  Serious: Yes (Hospitalization)
  Sender: FDA-Public Use
  Company Number: CH-ASTELLAS-2022US042118

PATIENT
  Age: 46 Year
  Sex: Female

DRUGS (13)
  1. PROGRAF [Interacting]
     Active Substance: TACROLIMUS
     Indication: Heart transplant
     Dosage: 1 MG, TWICE DAILY (2-0-2-0)
     Route: 048
     Dates: start: 20180418, end: 20220905
  2. PROGRAF [Interacting]
     Active Substance: TACROLIMUS
     Indication: Prophylaxis against transplant rejection
     Dosage: (2-0-1-0), (DOSE REDUCED), TWICE DAILY
     Route: 048
  3. PAXLOVID [Interacting]
     Active Substance: NIRMATRELVIR\RITONAVIR
     Indication: COVID-19
     Dosage: TWO 150 MG TABLETS OF NIRMATRELVIR, ONE 100 MG TABLET OF RITONAVIR,EVERY 12 HOURS FOR 2 DAYS
     Route: 048
     Dates: start: 20220903, end: 20220904
  4. CERTICAN [Interacting]
     Active Substance: EVEROLIMUS
     Indication: Heart transplant
     Dosage: 0.75 MG, TWICE DAILY (1-0-1-0)
     Route: 048
     Dates: start: 20180418, end: 20220905
  5. CERTICAN [Interacting]
     Active Substance: EVEROLIMUS
     Indication: Prophylaxis against transplant rejection
  6. PREDNISONE [Concomitant]
     Active Substance: PREDNISONE
     Indication: Product used for unknown indication
     Dosage: 5 MG, ONCE DAILY (1-0-0-0)
     Route: 048
  7. MYFORTIC [Concomitant]
     Active Substance: MYCOPHENOLATE SODIUM
     Indication: Product used for unknown indication
     Dosage: 360 MG, TWICE DAILY (1-0-1)
     Route: 048
  8. MAGNESIUM ASPARTATE HYDROCHLORIDE [Concomitant]
     Active Substance: MAGNESIUM ASPARTATE HYDROCHLORIDE
     Indication: Product used for unknown indication
     Dosage: 2.5 MMOL, TWICE DAILY (1-0-1-0)
     Route: 048
  9. ESCITALOPRAM OXALATE [Concomitant]
     Active Substance: ESCITALOPRAM OXALATE
     Indication: Product used for unknown indication
     Dosage: 10 MG, OTHER (0.5-0-0-0, EVERY 2 DAYS)
     Route: 048
  10. ESCITALOPRAM OXALATE [Concomitant]
     Active Substance: ESCITALOPRAM OXALATE
     Dosage: 10 MG, ONCE DAILY  (1-0-0-0), EVERY 2 DAYS
     Route: 048
  11. Calcimagon D3 Forte [Concomitant]
     Indication: Product used for unknown indication
     Dosage: UNK UNK, ONCE DAILY (1000MG/ 800 E LEMON (CALCIUM, IONIZED, CHOLECALCIFEROL (VITAMIN D3); 0-1-0-0)
     Route: 048
  12. ALDACTONE [Concomitant]
     Active Substance: SPIRONOLACTONE
     Indication: Product used for unknown indication
     Dosage: 25 MG, ONCE DAILY (1-0-0-0)
     Route: 048
  13. PRAVASTATIN [Concomitant]
     Active Substance: PRAVASTATIN
     Indication: Product used for unknown indication
     Dosage: 40 MG, OTHER (0-0-0.5-0)
     Route: 048

REACTIONS (4)
  - Immunosuppressant drug level increased [Recovering/Resolving]
  - Headache [Recovering/Resolving]
  - Diarrhoea [Recovering/Resolving]
  - Drug interaction [Recovering/Resolving]

NARRATIVE: CASE EVENT DATE: 20220905
